FAERS Safety Report 6960037-5 (Version None)
Quarter: 2010Q3

REPORT INFORMATION
  Report Type: 
  Country: None (occurrence: None)
  Receive Date: 20100901
  Receipt Date: 20100819
  Transmission Date: 20110219
  Serious: Yes (Disabling)
  Sender: FDA-Public Use
  Company Number: PHHY2010CA26630

PATIENT
  Sex: Female

DRUGS (2)
  1. ZOLEDRONIC [Suspect]
     Indication: OSTEOPOROSIS
     Dosage: 5 MG YEARLY
     Route: 042
     Dates: start: 20100422
  2. ATIVAN [Concomitant]
     Dosage: 1 MG, BID

REACTIONS (11)
  - ARTHRALGIA [None]
  - BONE PAIN [None]
  - CHILLS [None]
  - CRYING [None]
  - GAIT DISTURBANCE [None]
  - GENERAL PHYSICAL HEALTH DETERIORATION [None]
  - HAND DEFORMITY [None]
  - MUSCLE SPASMS [None]
  - PHYSICAL DISABILITY [None]
  - PYREXIA [None]
  - WALKING AID USER [None]
